FAERS Safety Report 9422138 (Version 1)
Quarter: 2013Q3

REPORT INFORMATION
  Report Type: Spontaneous
  Country: US (occurrence: US)
  Receive Date: 20130726
  Receipt Date: 20130726
  Transmission Date: 20140515
  Serious: No
  Sender: FDA-Public Use
  Company Number: US-009507513-1307USA009926

PATIENT
  Age: 35 Year
  Sex: Female

DRUGS (5)
  1. ISENTRESS [Suspect]
     Dosage: 800
     Route: 048
  2. TENOFOVIR DISOPROXIL FUMARATE [Suspect]
     Dosage: 1
     Route: 048
  3. FUMARATE/EMTRICITABINE [Suspect]
  4. ZIDOVUDINE [Suspect]
     Dosage: 2
     Route: 042
  5. ZIDOVUDINE [Suspect]
     Dosage: 1
     Route: 042

REACTIONS (1)
  - Exposure during pregnancy [Recovered/Resolved]
